FAERS Safety Report 20977238 (Version 2)
Quarter: 2023Q1

REPORT INFORMATION
  Report Type: Report from Study
  Country: US (occurrence: US)
  Receive Date: 20220617
  Receipt Date: 20230117
  Transmission Date: 20230417
  Serious: Yes (Hospitalization, Other)
  Sender: FDA-Public Use
  Company Number: US-MALLINCKRODT-T202203010

PATIENT
  Sex: Male

DRUGS (3)
  1. CORTICOTROPIN [Suspect]
     Active Substance: CORTICOTROPIN
     Indication: Sarcoidosis
     Dosage: 80 UNITS (1 MILLILITER), TWICE A WEEK
     Route: 058
     Dates: start: 20211228
  2. CORTICOTROPIN [Suspect]
     Active Substance: CORTICOTROPIN
     Indication: Rheumatoid arthritis
     Dosage: 0.8 MILLILITER
     Route: 065
  3. CORTICOTROPIN [Suspect]
     Active Substance: CORTICOTROPIN
     Indication: Ankylosing spondylitis
     Dosage: 40 UNITS 5 DAYS A WEEK (STOP DATE: 01-DEC-2022)
     Route: 065

REACTIONS (9)
  - Hospitalisation [Unknown]
  - COVID-19 [Not Recovered/Not Resolved]
  - Sarcoidosis [Recovering/Resolving]
  - Rheumatoid arthritis [Recovering/Resolving]
  - Ankylosing spondylitis [Recovering/Resolving]
  - Condition aggravated [Recovering/Resolving]
  - Diabetes mellitus [Recovered/Resolved]
  - Nasopharyngitis [Not Recovered/Not Resolved]
  - Underdose [Unknown]
